FAERS Safety Report 6606633-6 (Version None)
Quarter: 2010Q1

REPORT INFORMATION
  Report Type: 
  Country: None (occurrence: None)
  Receive Date: 20100226
  Receipt Date: 20100217
  Transmission Date: 20100710
  Serious: Yes (Hospitalization)
  Sender: FDA-Public Use
  Company Number: CA-ABBOTT-10P-028-0627599-00

PATIENT
  Sex: Female
  Weight: 104.42 kg

DRUGS (18)
  1. HUMIRA [Suspect]
     Indication: CROHN'S DISEASE
     Route: 058
     Dates: start: 20080103
  2. IMURAN [Concomitant]
     Indication: CROHN'S DISEASE
     Dosage: 50 MG 3 TABLETS QD
     Route: 048
  3. APO-LANSOPRAZOLE [Concomitant]
     Indication: GASTRIC PH DECREASED
     Route: 048
  4. SYNTHROID [Concomitant]
     Indication: THYROID DISORDER
     Route: 048
  5. MYLAN MINOCYCLINE [Concomitant]
     Indication: ERYTHEMA
     Route: 048
  6. NETTIE POT SALINE RINSE [Concomitant]
     Indication: NASAL DRYNESS
     Route: 045
  7. VAGIFEM [Concomitant]
     Indication: DRUG USE FOR UNKNOWN INDICATION
     Dosage: 1 TABLET 1 USE TWICE A WEEK
  8. LOVAZA [Concomitant]
     Indication: DRUG USE FOR UNKNOWN INDICATION
     Dosage: 400MG (2 TAB QAM, 1 TAB QHS)
     Route: 048
  9. FLAX SEED [Concomitant]
     Indication: DRUG USE FOR UNKNOWN INDICATION
     Dosage: 1 TAB QAM AND 1 TAB QHS
     Route: 048
  10. VITAMIN D [Concomitant]
     Indication: BONE DISORDER
     Route: 048
  11. FERROUS SULFATE TAB [Concomitant]
     Indication: ANAEMIA
     Route: 048
  12. EVENING PRIMROSE OIL [Concomitant]
     Indication: DRUG USE FOR UNKNOWN INDICATION
     Dosage: 3 TABLETS BID
     Route: 048
  13. GARLIC [Concomitant]
     Indication: DRUG USE FOR UNKNOWN INDICATION
     Route: 048
  14. VITAMIN B COMPLEX CAP [Concomitant]
     Indication: DRUG USE FOR UNKNOWN INDICATION
     Route: 048
  15. SENIORS MULTIVITAMIN [Concomitant]
     Indication: DRUG USE FOR UNKNOWN INDICATION
     Route: 048
  16. ESTER-C [Concomitant]
     Indication: DRUG USE FOR UNKNOWN INDICATION
     Route: 048
  17. VITAMIN E [Concomitant]
     Indication: DRUG USE FOR UNKNOWN INDICATION
     Route: 048
  18. VITALUX [Concomitant]
     Indication: DRUG USE FOR UNKNOWN INDICATION
     Route: 048

REACTIONS (8)
  - ARTHROPOD BITE [None]
  - ATRIAL FIBRILLATION [None]
  - CARDIAC FAILURE [None]
  - CHEST DISCOMFORT [None]
  - HEART RATE INCREASED [None]
  - IMPAIRED HEALING [None]
  - INJECTION SITE PAIN [None]
  - WHEEZING [None]
